FAERS Safety Report 9462753 (Version 1)
Quarter: 2013Q3

REPORT INFORMATION
  Report Type: Report from Study
  Country: CZ (occurrence: CZ)
  Receive Date: 20130816
  Receipt Date: 20130816
  Transmission Date: 20140515
  Serious: Yes (Hospitalization)
  Sender: FDA-Public Use
  Company Number: CZ-ABBOTT-13P-217-1046272-00

PATIENT
  Age: 67 Year
  Sex: Male
  Weight: 100 kg

DRUGS (12)
  1. HUMIRA [Suspect]
     Indication: RHEUMATOID ARTHRITIS
     Route: 058
  2. BETALOC [Concomitant]
     Indication: PRODUCT USED FOR UNKNOWN INDICATION
     Dosage: 1/2 TABLET IN THE MORNING AND EVENING
  3. TRANDOLAPRIL [Concomitant]
     Indication: PRODUCT USED FOR UNKNOWN INDICATION
  4. TORVACARD [Concomitant]
     Indication: PRODUCT USED FOR UNKNOWN INDICATION
  5. FURON [Concomitant]
     Indication: PRODUCT USED FOR UNKNOWN INDICATION
  6. AGEN [Concomitant]
     Indication: PRODUCT USED FOR UNKNOWN INDICATION
  7. COAXIL 12.5 MG(TIANEPT?N) [Concomitant]
     Indication: PRODUCT USED FOR UNKNOWN INDICATION
  8. AMISULPRID [Concomitant]
     Indication: PRODUCT USED FOR UNKNOWN INDICATION
  9. EUPHYLLIN 300 MG (TEOFYLINUM) [Concomitant]
     Indication: PRODUCT USED FOR UNKNOWN INDICATION
  10. SERETIDE DISCUS [Concomitant]
     Indication: PRODUCT USED FOR UNKNOWN INDICATION
     Dosage: 50/250 UG
  11. VENTOLIN [Concomitant]
     Indication: PRODUCT USED FOR UNKNOWN INDICATION
     Dosage: 2 INHALTAIONS AS NEEDED
     Route: 055
  12. TROMBEX [Concomitant]
     Indication: PRODUCT USED FOR UNKNOWN INDICATION

REACTIONS (1)
  - Peripheral arterial occlusive disease [Recovered/Resolved]
